FAERS Safety Report 4639699-3 (Version None)
Quarter: 2005Q2

REPORT INFORMATION
  Report Type: 
  Country: None (occurrence: None)
  Receive Date: 20050415
  Receipt Date: 20050401
  Transmission Date: 20051028
  Serious: Yes (Hospitalization)
  Sender: FDA-Public Use
  Company Number: 10785

PATIENT
  Age: 45 Year
  Sex: Female

DRUGS (2)
  1. ACYCLOVIR [Suspect]
     Indication: VARICELLA
     Dosage: IV
     Route: 042
     Dates: start: 20050223, end: 20050225
  2. PENTAMIDINE [Concomitant]

REACTIONS (2)
  - ANGIONEUROTIC OEDEMA [None]
  - ERYTHEMA [None]
